FAERS Safety Report 13913449 (Version 1)
Quarter: 2017Q3

REPORT INFORMATION
  Report Type: Spontaneous
  Country: US (occurrence: US)
  Receive Date: 20170828
  Receipt Date: 20170828
  Transmission Date: 20171127
  Serious: No
  Sender: FDA-Public Use
  Company Number: US-ROCHE-1136341

PATIENT
  Age: 60 Year
  Sex: Female
  Weight: 87.62 kg

DRUGS (8)
  1. CELEBREX [Concomitant]
     Active Substance: CELECOXIB
     Route: 048
  2. NEXIUM [Concomitant]
     Active Substance: ESOMEPRAZOLE MAGNESIUM
     Route: 048
  3. NUTROPIN AQ [Suspect]
     Active Substance: SOMATROPIN
     Indication: GROWTH HORMONE DEFICIENCY
     Dosage: 0.1 CC
     Route: 058
     Dates: start: 19990805
  4. SYNTHROID [Concomitant]
     Active Substance: LEVOTHYROXINE SODIUM
     Route: 065
  5. PAXIL [Concomitant]
     Active Substance: PAROXETINE HYDROCHLORIDE
     Route: 065
  6. VIVELLE [Concomitant]
     Active Substance: ESTRADIOL
     Route: 061
  7. ESTRACE [Concomitant]
     Active Substance: ESTRADIOL
  8. SKELAXIN [Concomitant]
     Active Substance: METAXALONE
     Route: 065

REACTIONS (5)
  - Feeling abnormal [Unknown]
  - Arthralgia [Unknown]
  - Muscle spasms [Unknown]
  - Neck pain [Unknown]
  - Fatigue [Unknown]

NARRATIVE: CASE EVENT DATE: 20010814
